FAERS Safety Report 11849120 (Version 1)
Quarter: 2015Q4

REPORT INFORMATION
  Report Type: Spontaneous
  Country: GB (occurrence: GB)
  Receive Date: 20151218
  Receipt Date: 20151218
  Transmission Date: 20160305
  Serious: Yes (Disabling, Other)
  Sender: FDA-Public Use
  Company Number: GB-SUN PHARMACEUTICAL INDUSTRIES LTD-2015RR-106178

PATIENT

DRUGS (1)
  1. ISOTRETINOIN [Suspect]
     Active Substance: ISOTRETINOIN
     Indication: ACNE
     Dosage: 20 MG, BID
     Route: 065
     Dates: start: 20151009, end: 20151031

REACTIONS (8)
  - Headache [Unknown]
  - Libido decreased [Recovered/Resolved with Sequelae]
  - Treatment noncompliance [Unknown]
  - Erectile dysfunction [Recovered/Resolved with Sequelae]
  - Nasal dryness [Unknown]
  - Emotional disorder [Unknown]
  - Dry skin [Unknown]
  - Lip dry [Unknown]

NARRATIVE: CASE EVENT DATE: 20151031
